FAERS Safety Report 5113328-7 (Version None)
Quarter: 2006Q3

REPORT INFORMATION
  Report Type: 
  Country: None (occurrence: None)
  Receive Date: 20060920
  Receipt Date: 20060905
  Transmission Date: 20061208
  Serious: Yes (Hospitalization, Other)
  Sender: FDA-Public Use
  Company Number: US-2006-024242

PATIENT
  Age: 72 Year
  Sex: Female
  Weight: 53.1 kg

DRUGS (6)
  1. BETASERON [Suspect]
     Indication: RELAPSING-REMITTING MULTIPLE SCLEROSIS
     Dosage: 8 MIU, SUBCUTANEOUSS
     Route: 058
     Dates: start: 20051201, end: 20060701
  2. PERCOCET [Concomitant]
  3. ATENOLOL [Concomitant]
  4. PLAVIX [Concomitant]
  5. VESICARE [Concomitant]
  6. PRAVASTATIN SODIUM [Concomitant]

REACTIONS (4)
  - BREAST CANCER FEMALE [None]
  - CARPAL TUNNEL DECOMPRESSION [None]
  - INTERVERTEBRAL DISC OPERATION [None]
  - SPINAL OPERATION [None]
